FAERS Safety Report 12173241 (Version 1)
Quarter: 2016Q1

REPORT INFORMATION
  Report Type: Spontaneous
  Country: US (occurrence: US)
  Receive Date: 20160311
  Receipt Date: 20160311
  Transmission Date: 20160526
  Serious: Yes (Other)
  Sender: FDA-Public Use
  Company Number: US-ASTRAZENECA-2016SE27247

PATIENT
  Age: 958 Month
  Sex: Female
  Weight: 68.6 kg

DRUGS (3)
  1. AFINITOR [Concomitant]
     Active Substance: EVEROLIMUS
  2. FASLODEX [Suspect]
     Active Substance: FULVESTRANT
     Route: 030
     Dates: start: 201304, end: 201601
  3. AROMASIN [Suspect]
     Active Substance: EXEMESTANE
     Route: 065

REACTIONS (4)
  - Breast mass [Unknown]
  - Amnesia [Unknown]
  - Pruritus [Unknown]
  - Breast cancer [Unknown]

NARRATIVE: CASE EVENT DATE: 201301
